FAERS Safety Report 25698232 (Version 1)
Quarter: 2025Q3

REPORT INFORMATION
  Report Type: Report from Study
  Country: US (occurrence: US)
  Receive Date: 20250819
  Receipt Date: 20250819
  Transmission Date: 20251021
  Serious: No
  Sender: SUNOVION
  Company Number: US-SUMITOMO PHARMA SWITZERLAND GMBH-2025SPA007638

PATIENT
  Age: 75 Year
  Sex: Male

DRUGS (39)
  1. ORGOVYX [Suspect]
     Active Substance: RELUGOLIX
     Indication: Prostate cancer
     Route: 048
     Dates: start: 20250603, end: 20250603
  2. ORGOVYX [Suspect]
     Active Substance: RELUGOLIX
     Route: 048
  3. XTANDI [Suspect]
     Active Substance: ENZALUTAMIDE
     Indication: Product used for unknown indication
  4. ADDERALL [Suspect]
     Active Substance: AMPHETAMINE ASPARTATE\AMPHETAMINE SULFATE\DEXTROAMPHETAMINE SACCHARATE\DEXTROAMPHETAMINE SULFATE
  5. ALBUTEROL [Concomitant]
     Active Substance: ALBUTEROL
  6. ALPHA LIPOIC ACID [Concomitant]
     Active Substance: .ALPHA.-LIPOIC ACID
  7. AMPHETAMINE [Concomitant]
     Active Substance: AMPHETAMINE
  8. ASPIRIN [Concomitant]
     Active Substance: ASPIRIN
  9. Beta sitosterol [Concomitant]
     Route: 048
  10. BIOTIN [Concomitant]
     Active Substance: BIOTIN
  11. DIETARY SUPPLEMENT\HERBALS\INDIAN FRANKINCENSE [Concomitant]
     Active Substance: DIETARY SUPPLEMENT\HERBALS\INDIAN FRANKINCENSE
  12. Butchers Broom [Concomitant]
  13. CINNAMON [Concomitant]
     Active Substance: CINNAMON
  14. CLARITIN [Concomitant]
     Active Substance: LORATADINE
  15. COENZYME Q10 [Concomitant]
     Active Substance: DIETARY SUPPLEMENT\UBIDECARENONE
  16. FLONASE [Concomitant]
     Active Substance: FLUTICASONE PROPIONATE
  17. GABAPENTIN [Concomitant]
     Active Substance: GABAPENTIN
  18. CHONDROITIN SULFATE (BOVINE)\GLUCOSAMINE HYDROCHLORIDE [Concomitant]
     Active Substance: CHONDROITIN SULFATE (BOVINE)\GLUCOSAMINE HYDROCHLORIDE
  19. IBUPROFEN [Concomitant]
     Active Substance: IBUPROFEN
  20. KRILL OIL [Concomitant]
     Active Substance: DIETARY SUPPLEMENT\KRILL OIL
  21. LOSARTAN [Concomitant]
     Active Substance: LOSARTAN
  22. LUPRON [Concomitant]
     Active Substance: LEUPROLIDE ACETATE
  23. MAGNESIUM [Concomitant]
     Active Substance: MAGNESIUM
  24. MALIC ACID [Concomitant]
     Active Substance: MALIC ACID
  25. METFORMIN [Concomitant]
     Active Substance: METFORMIN HYDROCHLORIDE
  26. MOUNJARO [Concomitant]
     Active Substance: TIRZEPATIDE
  27. VITAMINS [Concomitant]
     Active Substance: VITAMINS
     Route: 048
  28. PANTOTHENIC ACID [Concomitant]
     Active Substance: PANTOTHENIC ACID
  29. PSEUDOEPHEDRINE [Concomitant]
     Active Substance: PSEUDOEPHEDRINE
  30. ROSUVASTATIN [Concomitant]
     Active Substance: ROSUVASTATIN
  31. SERTRALINE [Concomitant]
     Active Substance: SERTRALINE HYDROCHLORIDE
  32. HERBALS\TURMERIC [Concomitant]
     Active Substance: HERBALS\TURMERIC
  33. VANADIUM [Concomitant]
     Active Substance: VANADIUM
  34. VENTOLIN [Concomitant]
     Active Substance: ALBUTEROL SULFATE
  35. VITAMIN B1 [Concomitant]
     Active Substance: THIAMINE HYDROCHLORIDE
  36. VITAMIN B12 [Concomitant]
     Active Substance: CYANOCOBALAMIN
  37. VITAMIN D3 [Concomitant]
     Active Substance: CHOLECALCIFEROL
  38. PUMPKIN SEED OIL [Concomitant]
     Active Substance: PUMPKIN SEED OIL
  39. Metamucil 4 in 1 fiber [Concomitant]

REACTIONS (13)
  - Epistaxis [Unknown]
  - Presyncope [Recovered/Resolved]
  - Decreased appetite [Unknown]
  - Mucosal inflammation [Unknown]
  - Skin lesion [Unknown]
  - Chapped lips [Unknown]
  - Skin atrophy [Unknown]
  - Dizziness [Recovered/Resolved]
  - Weight decreased [Unknown]
  - Constipation [Unknown]
  - Fatigue [Unknown]
  - Asthenia [Unknown]
  - Product dose omission issue [Recovered/Resolved]
